FAERS Safety Report 5899312-4 (Version None)
Quarter: 2008Q3

REPORT INFORMATION
  Report Type: 
  Country: None (occurrence: None)
  Receive Date: 20080909
  Receipt Date: 20070926
  Transmission Date: 20090109
  Serious: Yes (Other)
  Sender: FDA-Public Use
  Company Number: HQWYE350427SEP07

PATIENT
  Sex: Female

DRUGS (3)
  1. ADVIL [Suspect]
     Indication: MIGRAINE
     Dosage: 4 CAPSULES X 1 , ORAL ; 4 CAPSULES AT ONE TIME IN THE PAST AS DIRECTED BY HER DOCTOR, ORAL
     Route: 048
     Dates: start: 20070925, end: 20070925
  2. TOPAMAX [Concomitant]
  3. MIDRIN (DICHLORALPHENAZONE/ISOMETHEPTENE/PARACETAMOL) [Concomitant]

REACTIONS (5)
  - DYSGEUSIA [None]
  - DYSPEPSIA [None]
  - NASAL DISCOMFORT [None]
  - THROAT IRRITATION [None]
  - VOMITING [None]
